FAERS Safety Report 6683364-8 (Version None)
Quarter: 2010Q2

REPORT INFORMATION
  Report Type: 
  Country: None (occurrence: None)
  Receive Date: 20100415
  Receipt Date: 20090402
  Transmission Date: 20101027
  Serious: No
  Sender: FDA-Public Use
  Company Number: A0776869A

PATIENT
  Age: 87 Year
  Sex: Female

DRUGS (1)
  1. LEUKERAN [Suspect]
     Dosage: 2MG EVERY 3 DAYS
     Route: 048

REACTIONS (1)
  - DIARRHOEA [None]
